FAERS Safety Report 8165620-X (Version None)
Quarter: 2012Q1

REPORT INFORMATION
  Report Type: 
  Country: None (occurrence: None)
  Receive Date: 20120103
  Receipt Date: 20111103
  Transmission Date: 20120608
  Serious: No
  Sender: FDA-Public Use
  Company Number: AE-2011-002453

PATIENT
  Age: 48 Year
  Sex: Female
  Weight: 77.1115 kg

DRUGS (3)
  1. RIBAVIRIN [Concomitant]
  2. INCIVEK [Suspect]
     Dosage: 2250 MG, (750 MG, 1 IN 8 HR), ORAL
     Route: 048
     Dates: start: 20111004, end: 20111104
  3. PEGASYS [Concomitant]

REACTIONS (2)
  - RASH PAPULAR [None]
  - TREATMENT NONCOMPLIANCE [None]
